FAERS Safety Report 11701573 (Version 1)
Quarter: 2015Q4

REPORT INFORMATION
  Report Type: Spontaneous
  Country: US (occurrence: US)
  Receive Date: 20151105
  Receipt Date: 20151105
  Transmission Date: 20160304
  Serious: No
  Sender: FDA-Public Use
  Company Number: US-MALLINCKRODT-T201404040

PATIENT
  Age: 44 Year
  Sex: Female
  Weight: 69 kg

DRUGS (6)
  1. ACARBOSE. [Concomitant]
     Active Substance: ACARBOSE
     Dosage: 50 MG, UNK
  2. FENTANYL. [Concomitant]
     Active Substance: FENTANYL
     Dosage: 50 UG/HR, UNK
     Route: 062
     Dates: end: 201410
  3. VITAMIN B12 [Concomitant]
     Active Substance: CYANOCOBALAMIN
     Dosage: SHOT; EVERY TWO WEEKS
     Route: 050
  4. FENTANYL TRANSDERMAL SYSTEM [Suspect]
     Active Substance: FENTANYL
     Indication: PAIN
     Dosage: 50 UG/HR, Q72H
     Route: 062
     Dates: start: 20141031
  5. DIAZEPAM. [Concomitant]
     Active Substance: DIAZEPAM
     Dosage: 5 MG. UNK
  6. MORPHINE [Concomitant]
     Active Substance: MORPHINE
     Dosage: 30 MG, UNK

REACTIONS (4)
  - Application site burn [Not Recovered/Not Resolved]
  - Inappropriate schedule of drug administration [Unknown]
  - Application site pain [Not Recovered/Not Resolved]
  - Product adhesion issue [Unknown]

NARRATIVE: CASE EVENT DATE: 20141031
